FAERS Safety Report 10765234 (Version 2)
Quarter: 2015Q1

REPORT INFORMATION
  Report Type: Spontaneous
  Country: FR (occurrence: FR)
  Receive Date: 20150205
  Receipt Date: 20150210
  Transmission Date: 20150721
  Serious: Yes (Death)
  Sender: FDA-Public Use
  Company Number: FR-ROCHE-1530798

PATIENT
  Sex: Male
  Weight: 71 kg

DRUGS (8)
  1. AMIKACINE [Suspect]
     Active Substance: AMIKACIN
     Indication: SEPSIS
     Route: 065
     Dates: start: 20120630, end: 20120701
  2. GENTAMYCIN [Suspect]
     Active Substance: GENTAMICIN
     Indication: STAPHYLOCOCCAL SEPSIS
     Route: 065
     Dates: start: 20120704, end: 20120711
  3. ESCITALOPRAM [Concomitant]
     Active Substance: ESCITALOPRAM OXALATE
  4. VANCOMYCINE [Suspect]
     Active Substance: VANCOMYCIN
     Indication: STAPHYLOCOCCAL SEPSIS
     Route: 065
     Dates: start: 20120704, end: 20120730
  5. MEMANTINE [Concomitant]
     Active Substance: MEMANTINE
  6. WARFARIN [Concomitant]
     Active Substance: WARFARIN
  7. CEFTRIAXONE. [Suspect]
     Active Substance: CEFTRIAXONE
     Indication: SEPSIS
     Route: 042
     Dates: start: 20120630, end: 20120730
  8. OMEPRAZOLE. [Concomitant]
     Active Substance: OMEPRAZOLE

REACTIONS (2)
  - Renal failure [Fatal]
  - Staphylococcal sepsis [Fatal]

NARRATIVE: CASE EVENT DATE: 20140712
